FAERS Safety Report 13091932 (Version 4)
Quarter: 2017Q1

REPORT INFORMATION
  Report Type: Spontaneous
  Country: JP (occurrence: JP)
  Receive Date: 20170106
  Receipt Date: 20170303
  Transmission Date: 20170428
  Serious: Yes (Hospitalization, Other)
  Sender: FDA-Public Use
  Company Number: JP-ELI_LILLY_AND_COMPANY-JP201701001284

PATIENT
  Age: 70 Year
  Sex: Male

DRUGS (7)
  1. RABEPRAZOLE SODIUM. [Concomitant]
     Active Substance: RABEPRAZOLE SODIUM
     Dosage: UNK
     Route: 048
  2. CORTRIL [Concomitant]
     Active Substance: HYDROCORTISONE
     Dosage: UNK
     Route: 048
  3. TRULICITY [Suspect]
     Active Substance: DULAGLUTIDE
     Indication: DIABETES MELLITUS
     Dosage: 0.75 MG, WEEKLY (1/W)
     Route: 058
     Dates: start: 20161101, end: 20161215
  4. ATORVASTATIN [Concomitant]
     Active Substance: ATORVASTATIN
     Dosage: UNK
     Route: 048
  5. OPDIVO [Concomitant]
     Active Substance: NIVOLUMAB
     Dosage: UNK
  6. MICARDIS [Concomitant]
     Active Substance: TELMISARTAN
     Dosage: UNK
     Route: 048
  7. BAYASPIRIN [Concomitant]
     Active Substance: ASPIRIN
     Dosage: UNK
     Route: 048

REACTIONS (3)
  - Bile duct stone [Not Recovered/Not Resolved]
  - Pancreatitis [Not Recovered/Not Resolved]
  - Pancreatic carcinoma [Unknown]

NARRATIVE: CASE EVENT DATE: 20161216
